FAERS Safety Report 19032135 (Version 1)
Quarter: 2021Q1

REPORT INFORMATION
  Report Type: Spontaneous
  Country: JP (occurrence: JP)
  Receive Date: 20210319
  Receipt Date: 20210319
  Transmission Date: 20210420
  Serious: Yes (Hospitalization)
  Sender: FDA-Public Use
  Company Number: JP-BAYER-2021-104860

PATIENT
  Sex: Female

DRUGS (1)
  1. YAZ [Suspect]
     Active Substance: DROSPIRENONE\ETHINYL ESTRADIOL
     Indication: PREMENSTRUAL DYSPHORIC DISORDER
     Dosage: UNK
     Route: 048
     Dates: start: 20210222

REACTIONS (5)
  - Psychiatric symptom [None]
  - Irritability [None]
  - Mood altered [None]
  - Off label use [None]
  - Anxiety disorder [None]
